FAERS Safety Report 18396628 (Version 7)
Quarter: 2021Q1

REPORT INFORMATION
  Report Type: Spontaneous
  Country: CA (occurrence: CA)
  Receive Date: 20201019
  Receipt Date: 20210104
  Transmission Date: 20210419
  Serious: Yes (Death, Hospitalization, Other)
  Sender: FDA-Public Use
  Company Number: CA-PFIZER INC-2020386995

PATIENT
  Age: 54 Year
  Sex: Female

DRUGS (4)
  1. PREDNISONE. [Concomitant]
     Active Substance: PREDNISONE
     Dosage: 50 MG, DAILY TAPER CURRENTLY AT 20 MG
  2. RUXIENCE [Suspect]
     Active Substance: RITUXIMAB-PVVR
     Indication: SARCOIDOSIS
     Dosage: 1800 MG 3 WEEKS
     Route: 042
     Dates: start: 20200908
  3. RUXIENCE [Suspect]
     Active Substance: RITUXIMAB-PVVR
     Dosage: 600 MG, WEEKLY FOR 4 WEEKS
     Route: 042
     Dates: start: 20201028, end: 20201028
  4. PREDNISONE. [Concomitant]
     Active Substance: PREDNISONE
     Dosage: 20 MG DAILY ? PLAN TO TAPER OFF

REACTIONS (6)
  - Sarcoidosis [Not Recovered/Not Resolved]
  - Disease progression [Not Recovered/Not Resolved]
  - Paralysis [Unknown]
  - Malaise [Unknown]
  - Death [Fatal]
  - Off label use [Unknown]

NARRATIVE: CASE EVENT DATE: 2020
